FAERS Safety Report 11646165 (Version 2)
Quarter: 2016Q2

REPORT INFORMATION
  Report Type: Spontaneous
  Country: US (occurrence: US)
  Receive Date: 20151020
  Receipt Date: 20160429
  Transmission Date: 20160815
  Serious: No
  Sender: FDA-Public Use
  Company Number: US-ROCHE-1608115

PATIENT
  Sex: Female
  Weight: 77.18 kg

DRUGS (2)
  1. ESBRIET [Suspect]
     Active Substance: PIRFENIDONE
     Dosage: DOSE REDUCED TO TWO CAPSULES DAILY (TOTAL DOSE OF (1602 MG).
     Route: 048
     Dates: start: 20150624
  2. ESBRIET [Suspect]
     Active Substance: PIRFENIDONE
     Indication: IDIOPATHIC PULMONARY FIBROSIS
     Dosage: DOSE REDUCED TO TWO CAPSULES DAILY (TOTAL DOSE OF (1602 MG).
     Route: 048
     Dates: start: 20150624

REACTIONS (6)
  - Weight decreased [Not Recovered/Not Resolved]
  - Constipation [Recovering/Resolving]
  - Decreased appetite [Recovering/Resolving]
  - Ageusia [Unknown]
  - Nausea [Unknown]
  - Dysgeusia [Unknown]
